FAERS Safety Report 8171166-5 (Version None)
Quarter: 2012Q1

REPORT INFORMATION
  Report Type: 
  Country: None (occurrence: None)
  Receive Date: 20120228
  Receipt Date: 20111122
  Transmission Date: 20120608
  Serious: No
  Sender: FDA-Public Use
  Company Number: US-BRISTOL-MYERS SQUIBB COMPANY-16243487

PATIENT
  Age: 68 Year
  Sex: Female

DRUGS (9)
  1. NORVASC [Concomitant]
  2. CRESTOR [Concomitant]
  3. HYDROCHLOROTHIAZIDE [Concomitant]
  4. ASPIRIN [Concomitant]
  5. ONGLYZA [Suspect]
  6. ATENOLOL [Concomitant]
  7. GLUCOVANCE [Concomitant]
  8. NEXIUM [Concomitant]
  9. LISINOPRIL [Concomitant]

REACTIONS (1)
  - OEDEMA [None]
